FAERS Safety Report 8620404-0 (Version None)
Quarter: 2012Q3

REPORT INFORMATION
  Report Type: 
  Country: None (occurrence: None)
  Receive Date: 20120824
  Receipt Date: 20120816
  Transmission Date: 20120928
  Serious: Yes (Hospitalization)
  Sender: FDA-Public Use
  Company Number: FR-GLAXOSMITHKLINE-B0812384A

PATIENT
  Sex: Female
  Weight: 42 kg

DRUGS (12)
  1. NEURONTIN [Concomitant]
     Dosage: 100MG TWICE PER DAY
  2. VEPESID [Concomitant]
     Indication: T-CELL TYPE ACUTE LEUKAEMIA
     Dosage: 130MG PER DAY
     Route: 042
     Dates: start: 20120618, end: 20120620
  3. NALBUPHINE [Concomitant]
     Route: 042
     Dates: start: 20120624, end: 20120702
  4. ATRIANCE [Suspect]
     Indication: T-CELL TYPE ACUTE LEUKAEMIA
     Dosage: 820MG SINGLE DOSE
     Route: 042
     Dates: start: 20120618, end: 20120622
  5. CYCLOPHOSPHAMIDE [Concomitant]
     Dosage: 300MG PER DAY
     Route: 042
     Dates: start: 20120618, end: 20120620
  6. CYTARABINE [Concomitant]
     Dosage: 30MG CYCLIC
     Route: 037
     Dates: end: 20120615
  7. MEDROL [Concomitant]
     Dosage: 10MG CYCLIC
     Route: 037
     Dates: start: 20120608, end: 20120615
  8. PURINETHOL [Concomitant]
     Dosage: 25MG PER DAY
     Route: 048
  9. METHOTREXATE [Concomitant]
     Indication: T-CELL TYPE ACUTE LEUKAEMIA
     Dosage: 12MG CYCLIC
     Route: 037
     Dates: start: 20120608, end: 20120615
  10. VALACYCLOVIR HYDROCHLORIDE [Concomitant]
     Dates: start: 20100901
  11. URSOLVAN [Concomitant]
     Route: 048
     Dates: start: 20120620
  12. METHOTREXATE [Concomitant]
     Route: 037
     Dates: end: 20120615

REACTIONS (11)
  - DYSSTASIA [None]
  - GUILLAIN-BARRE SYNDROME [None]
  - PERIPHERAL MOTOR NEUROPATHY [None]
  - POLLAKIURIA [None]
  - PAIN IN EXTREMITY [None]
  - LOSS OF PROPRIOCEPTION [None]
  - PERIPHERAL SENSORY NEUROPATHY [None]
  - PARAESTHESIA [None]
  - GRIP STRENGTH DECREASED [None]
  - MUSCLE TIGHTNESS [None]
  - HYPOAESTHESIA [None]
